FAERS Safety Report 6473563 (Version 12)
Quarter: 2013Q3

REPORT INFORMATION
  Report Type: Spontaneous
  Country: US (occurrence: US)
  Receive Date: 20071121
  Receipt Date: 20130903
  Transmission Date: 20140515
  Serious: Yes (Congenital Anomaly, Other)
  Sender: FDA-Public Use
  Company Number: US-PFIZER INC-2007095378

PATIENT
  Sex: Female

DRUGS (8)
  1. ZOLOFT [Suspect]
     Indication: TENSION HEADACHE
     Dosage: UNK
     Route: 064
     Dates: start: 2001
  2. ZOLOFT [Suspect]
     Indication: DEPRESSION
  3. ZOLOFT [Suspect]
     Indication: INSOMNIA
  4. ZOLOFT [Suspect]
     Indication: DRUG INTOLERANCE
  5. PAXIL [Concomitant]
     Dosage: UNK
     Route: 064
     Dates: start: 20011113, end: 20011126
  6. PROZAC [Concomitant]
     Dosage: UNK
     Route: 064
  7. PRENATAL VITAMINS [Concomitant]
     Dosage: UNK
     Route: 064
  8. MORPHINE [Concomitant]
     Dosage: UNK
     Route: 064

REACTIONS (7)
  - Foetal exposure during pregnancy [Unknown]
  - Ventricular septal defect [Unknown]
  - Aortic valve incompetence [Unknown]
  - Aortic valve prolapse [Unknown]
  - Pneumothorax [Unknown]
  - Post-traumatic stress disorder [Unknown]
  - Congenital anomaly [Unknown]
